FAERS Safety Report 16373089 (Version 1)
Quarter: 2019Q2

REPORT INFORMATION
  Report Type: Spontaneous
  Country: ES (occurrence: ES)
  Receive Date: 20190530
  Receipt Date: 20190530
  Transmission Date: 20190711
  Serious: Yes (Other)
  Sender: FDA-Public Use
  Company Number: ES-TEVA-2019-ES-1056196

PATIENT
  Age: 81 Year
  Sex: Male

DRUGS (8)
  1. CLOPIDOGREL SANDOZ 75 MG COMPRIMIDOS RECUBIERTOS CON PELICULA EFG , 50 [Concomitant]
     Route: 048
     Dates: start: 20190201
  2. LEVOFLOXACINO (2791A) [Suspect]
     Active Substance: LEVOFLOXACIN
     Indication: RESPIRATORY TRACT INFECTION
     Route: 048
     Dates: start: 20190201, end: 20190201
  3. SERC 8 MG/ML SOLUCION ORAL , 1 FRASCO DE 60 ML [Concomitant]
     Route: 048
  4. ZYLORIC 300 MG COMPRIMIDOS, 30 COMPRIMIDOS [Concomitant]
     Route: 048
  5. DEXNON 100 MICROGRAMOS COMPRIMIDOS , 100 COMPRIMIDOS [Concomitant]
     Route: 048
  6. VIDAZA 25 MG/ML POLVO PARA SUSPENSION INYECTABLE, 1 VIAL [Concomitant]
     Indication: MYELODYSPLASTIC SYNDROME
     Route: 058
  7. EPREX 40000 UI/ML SOLUCION INYECTABLE EN JERINGAS PRECARGADAS, 1 JERIN [Concomitant]
     Indication: MYELODYSPLASTIC SYNDROME
     Route: 058
  8. ATORVASTATINA NORMON 10 MG COMPRIMIDOS RECUBIERTOS CON PELICULA EFG , [Concomitant]
     Route: 048

REACTIONS (4)
  - Skin exfoliation [Recovered/Resolved]
  - Oedema peripheral [Recovered/Resolved]
  - Anaphylactic reaction [Recovered/Resolved]
  - Rash [Recovered/Resolved]

NARRATIVE: CASE EVENT DATE: 20190201
